FAERS Safety Report 4796376-6 (Version None)
Quarter: 2005Q4

REPORT INFORMATION
  Report Type: 
  Country: None (occurrence: None)
  Receive Date: 20051007
  Receipt Date: 20050927
  Transmission Date: 20060501
  Serious: Yes (Life-Threatening, Hospitalization)
  Sender: FDA-Public Use
  Company Number: 2005-09-1721

PATIENT
  Age: 60 Year
  Sex: Male

DRUGS (10)
  1. INTEGRILIN [Suspect]
     Indication: CORONARY ARTERY DISEASE
     Dosage: 20 MG INTRAVENOUS; BOLUS INTRAVENOUS; INJECTABLE SOLUTION; INJECTABLE SOLUTION
     Route: 042
     Dates: start: 20050901, end: 20050901
  2. INTEGRILIN [Suspect]
     Indication: THERAPEUTIC PROCEDURE
     Dosage: 20 MG INTRAVENOUS; BOLUS INTRAVENOUS; INJECTABLE SOLUTION; INJECTABLE SOLUTION
     Route: 042
     Dates: start: 20050901, end: 20050901
  3. INTEGRILIN [Suspect]
     Indication: CORONARY ARTERY DISEASE
     Dosage: 20 MG INTRAVENOUS; BOLUS INTRAVENOUS; INJECTABLE SOLUTION; INJECTABLE SOLUTION
     Route: 042
     Dates: start: 20050901, end: 20050901
  4. INTEGRILIN [Suspect]
     Indication: THERAPEUTIC PROCEDURE
     Dosage: 20 MG INTRAVENOUS; BOLUS INTRAVENOUS; INJECTABLE SOLUTION; INJECTABLE SOLUTION
     Route: 042
     Dates: start: 20050901, end: 20050901
  5. INTEGRILIN [Suspect]
     Indication: CORONARY ARTERY DISEASE
     Dosage: 20 MG INTRAVENOUS; BOLUS INTRAVENOUS; INJECTABLE SOLUTION; INJECTABLE SOLUTION
     Route: 042
     Dates: start: 20050901, end: 20050926
  6. INTEGRILIN [Suspect]
     Indication: THERAPEUTIC PROCEDURE
     Dosage: 20 MG INTRAVENOUS; BOLUS INTRAVENOUS; INJECTABLE SOLUTION; INJECTABLE SOLUTION
     Route: 042
     Dates: start: 20050901, end: 20050926
  7. INTEGRILIN [Suspect]
     Indication: CORONARY ARTERY DISEASE
     Dosage: 20 MG INTRAVENOUS; BOLUS INTRAVENOUS; INJECTABLE SOLUTION; INJECTABLE SOLUTION
     Route: 042
     Dates: start: 20050926, end: 20050926
  8. INTEGRILIN [Suspect]
     Indication: THERAPEUTIC PROCEDURE
     Dosage: 20 MG INTRAVENOUS; BOLUS INTRAVENOUS; INJECTABLE SOLUTION; INJECTABLE SOLUTION
     Route: 042
     Dates: start: 20050926, end: 20050926
  9. HEPARIN [Suspect]
  10. CLOPIDOGREL [Suspect]

REACTIONS (8)
  - AUTOIMMUNE DISORDER [None]
  - AUTOIMMUNE THROMBOCYTOPENIA [None]
  - GASTROINTESTINAL HAEMORRHAGE [None]
  - HAEMATOCHEZIA [None]
  - PERICARDIAL EFFUSION [None]
  - PERICARDIAL HAEMORRHAGE [None]
  - RENAL IMPAIRMENT [None]
  - SHOCK [None]
